FAERS Safety Report 11628654 (Version 1)
Quarter: 2015Q4

REPORT INFORMATION
  Report Type: Report from Study
  Country: US (occurrence: US)
  Receive Date: 20151014
  Receipt Date: 20151014
  Transmission Date: 20160304
  Serious: Yes (Hospitalization)
  Sender: FDA-Public Use
  Company Number: US-BIOGENIDEC-2015BI138611

PATIENT
  Age: 58 Year
  Sex: Male

DRUGS (1)
  1. TECFIDERA [Suspect]
     Active Substance: DIMETHYL FUMARATE
     Indication: MULTIPLE SCLEROSIS
     Route: 048

REACTIONS (5)
  - Splenomegaly [Unknown]
  - White blood cell count increased [Unknown]
  - Hepatic enzyme abnormal [Unknown]
  - Gait disturbance [Unknown]
  - Abasia [Unknown]

NARRATIVE: CASE EVENT DATE: 20150701
